FAERS Safety Report 20197662 (Version 1)
Quarter: 2021Q4

REPORT INFORMATION
  Report Type: Spontaneous
  Country: CA (occurrence: CA)
  Receive Date: 20211217
  Receipt Date: 20211217
  Transmission Date: 20220303
  Serious: Yes (Life-Threatening, Hospitalization, Other)
  Sender: FDA-Public Use
  Company Number: CA-TEVA-2021-CA-1987554

PATIENT
  Age: 76 Year
  Sex: Male

DRUGS (4)
  1. FLURBIPROFEN [Suspect]
     Active Substance: FLURBIPROFEN
     Indication: Rheumatoid arthritis
     Dosage: 100 MILLIGRAM DAILY;
     Route: 048
  2. METHOTREXATE [Concomitant]
     Active Substance: METHOTREXATE
  3. PERINDOPRIL [Concomitant]
     Active Substance: PERINDOPRIL
  4. PREDNISONE [Concomitant]
     Active Substance: PREDNISONE

REACTIONS (4)
  - Gastric ulcer perforation [Unknown]
  - Intra-abdominal fluid collection [Unknown]
  - Oxygen consumption increased [Unknown]
  - Pneumoperitoneum [Unknown]
